FAERS Safety Report 8826345 (Version 2)
Quarter: 2014Q3

REPORT INFORMATION
  Report Type: Report from Study
  Country: US (occurrence: US)
  Receive Date: 20121005
  Receipt Date: 20140919
  Transmission Date: 20150326
  Serious: Yes (Other)
  Sender: FDA-Public Use
  Company Number: US-ROCHE-1134728

PATIENT
  Sex: Female

DRUGS (4)
  1. RITUXAN [Suspect]
     Active Substance: RITUXIMAB
     Indication: NEOPLASM MALIGNANT
  2. DARVOCET [Concomitant]
     Active Substance: ACETAMINOPHEN\PROPOXYPHENE HYDROCHLORIDE
  3. RITUXAN [Suspect]
     Active Substance: RITUXIMAB
     Indication: LYMPHOMA
     Dosage: LAST DOSE WAS GIVEN IN FEB/2002. FIFTH LINE THERAPY; FIRST COURSE
     Route: 042
     Dates: start: 20020107
  4. RITUXAN [Suspect]
     Active Substance: RITUXIMAB
     Indication: B-CELL LYMPHOMA

REACTIONS (14)
  - Asthenia [Unknown]
  - Hypercalcaemia [Unknown]
  - Thrombocytopenia [Unknown]
  - Disease progression [Unknown]
  - Adrenal neoplasm [Unknown]
  - Abdominal pain [Unknown]
  - Lymphadenopathy [Unknown]
  - Hypovolaemia [Unknown]
  - Fatigue [Unknown]
  - Abdominal lymphadenopathy [Unknown]
  - Splenic lesion [Unknown]
  - Decreased appetite [Unknown]
  - Alopecia [Unknown]
  - Metastases to liver [Unknown]
